FAERS Safety Report 13912277 (Version 3)
Quarter: 2017Q4

REPORT INFORMATION
  Report Type: Spontaneous
  Country: US (occurrence: US)
  Receive Date: 20170828
  Receipt Date: 20171011
  Transmission Date: 20180320
  Serious: Yes (Death, Hospitalization)
  Sender: FDA-Public Use
  Company Number: US-PFIZER INC-2017366895

PATIENT
  Age: 90 Year
  Sex: Female
  Weight: 52 kg

DRUGS (3)
  1. CELEBREX [Suspect]
     Active Substance: CELECOXIB
     Indication: ARTHRALGIA
     Dosage: 10 MG, 2X/DAY
  2. CELEBREX [Suspect]
     Active Substance: CELECOXIB
     Indication: PAIN
     Dosage: 200 MG, 2X/DAY
     Dates: end: 201708
  3. DILANTIN [Suspect]
     Active Substance: PHENYTOIN
     Indication: MENINGIOMA BENIGN
     Dosage: 100 MG, 1X/DAY OR AS NEEDED
     Dates: start: 199907, end: 201708

REACTIONS (1)
  - Diverticulum oesophageal [Fatal]

NARRATIVE: CASE EVENT DATE: 201708
